FAERS Safety Report 23668023 (Version 1)
Quarter: 2024Q1

REPORT INFORMATION
  Report Type: Spontaneous
  Country: US (occurrence: None)
  Receive Date: 20240322
  Receipt Date: 20240322
  Transmission Date: 20240409
  Serious: Yes (unspecified)
  Sender: FDA-Public Use
  Company Number: None

PATIENT
  Age: 68 Year
  Sex: Female
  Weight: 116 kg

DRUGS (1)
  1. ENOXAPARIN [Suspect]
     Active Substance: ENOXAPARIN
     Indication: Anticoagulant therapy
     Dosage: OTHER FREQUENCY : Q12HR;?
     Route: 058
     Dates: start: 20231102, end: 20231110

REACTIONS (3)
  - Pain in extremity [None]
  - Contusion [None]
  - Haematoma [None]

NARRATIVE: CASE EVENT DATE: 20231110
